FAERS Safety Report 25330087 (Version 1)
Quarter: 2025Q2

REPORT INFORMATION
  Report Type: Spontaneous
  Country: US (occurrence: US)
  Receive Date: 20250519
  Receipt Date: 20250519
  Transmission Date: 20250717
  Serious: No
  Sender: ABBVIE
  Company Number: US-ABBVIE-6283311

PATIENT
  Sex: Female

DRUGS (1)
  1. RINVOQ [Suspect]
     Active Substance: UPADACITINIB
     Indication: Maternal exposure timing unspecified
     Route: 064

REACTIONS (6)
  - Foetal exposure during pregnancy [Unknown]
  - Infection [Recovered/Resolved]
  - Ear inflammation [Recovered/Resolved]
  - Pyrexia [Recovered/Resolved]
  - Influenza [Recovered/Resolved]
  - Pharyngitis [Unknown]

NARRATIVE: CASE EVENT DATE: 20240101
